FAERS Safety Report 17526367 (Version 4)
Quarter: 2020Q1

REPORT INFORMATION
  Report Type: Spontaneous
  Country: PL (occurrence: PL)
  Receive Date: 20200311
  Receipt Date: 20200331
  Transmission Date: 20200409
  Serious: Yes (Other)
  Sender: FDA-Public Use
  Company Number: PL-PFIZER INC-2020106111

PATIENT
  Age: 30 Year
  Sex: Male
  Weight: 66 kg

DRUGS (2)
  1. ENCORTON [PREDNISONE] [Concomitant]
     Active Substance: PREDNISONE
     Dosage: UNK
  2. ZESSLY [Suspect]
     Active Substance: INFLIXIMAB
     Indication: CROHN^S DISEASE
     Dosage: 330 MG, (0-2 WEEKS)
     Route: 042
     Dates: start: 20200218, end: 20200303

REACTIONS (10)
  - Anaphylactic reaction [Recovered/Resolved]
  - Headache [Recovering/Resolving]
  - Therapeutic product effect incomplete [Unknown]
  - Anxiety [Recovering/Resolving]
  - Blood pressure increased [Unknown]
  - Respiratory failure [Unknown]
  - Hypopnoea [Unknown]
  - Dyspnoea [Recovering/Resolving]
  - Skin discolouration [Unknown]
  - Erythema [Recovering/Resolving]

NARRATIVE: CASE EVENT DATE: 20200303
